FAERS Safety Report 4873806-2 (Version None)
Quarter: 2006Q1

REPORT INFORMATION
  Report Type: 
  Country: None (occurrence: None)
  Receive Date: 20060106
  Receipt Date: 20030911
  Transmission Date: 20060701
  Serious: Yes (Death, Hospitalization)
  Sender: FDA-Public Use
  Company Number: FR-BRISTOL-MYERS SQUIBB COMPANY-12383212

PATIENT
  Age: 73 Year
  Sex: Female

DRUGS (6)
  1. GLUCOPHAGE [Suspect]
     Route: 048
     Dates: end: 20030717
  2. DAONIL [Suspect]
     Route: 048
     Dates: end: 20030717
  3. INIPOMP [Suspect]
     Dates: end: 20030717
  4. TRIATEC [Concomitant]
  5. SPECIAFOLDINE [Concomitant]
  6. ACETAMINOPHEN [Concomitant]

REACTIONS (6)
  - ANAEMIA [None]
  - ANOREXIA [None]
  - CARDIO-RESPIRATORY ARREST [None]
  - HAEMOLYSIS [None]
  - HYPOGLYCAEMIA [None]
  - WEIGHT DECREASED [None]
